FAERS Safety Report 13500836 (Version 2)
Quarter: 2017Q4

REPORT INFORMATION
  Report Type: Spontaneous
  Country: US (occurrence: US)
  Receive Date: 20170501
  Receipt Date: 20171027
  Transmission Date: 20180320
  Serious: No
  Sender: FDA-Public Use
  Company Number: US-ROCHE-1823682

PATIENT
  Age: 75 Year
  Sex: Female

DRUGS (34)
  1. TEMAZEPAM. [Concomitant]
     Active Substance: TEMAZEPAM
  2. LASIX [Concomitant]
     Active Substance: FUROSEMIDE
  3. DILTIAZEM HCL [Concomitant]
     Active Substance: DILTIAZEM HYDROCHLORIDE
     Dosage: DILTIAZEM HCL ER
     Route: 065
  4. WARFARIN SODIUM. [Concomitant]
     Active Substance: WARFARIN SODIUM
  5. PROTONIX [Concomitant]
     Active Substance: PANTOPRAZOLE SODIUM
  6. NORCO [Concomitant]
     Active Substance: ACETAMINOPHEN\HYDROCODONE BITARTRATE
  7. LANOXIN [Concomitant]
     Active Substance: DIGOXIN
  8. ACETAMINOPHEN. [Concomitant]
     Active Substance: ACETAMINOPHEN
  9. ESTRADIOL. [Concomitant]
     Active Substance: ESTRADIOL
  10. ALPRAZOLAM. [Concomitant]
     Active Substance: ALPRAZOLAM
  11. AMBIEN [Concomitant]
     Active Substance: ZOLPIDEM TARTRATE
  12. ESTRACE [Concomitant]
     Active Substance: ESTRADIOL
  13. B12-ACTIVE [Concomitant]
  14. AZITHROMYCIN ANHYDROUS. [Concomitant]
     Active Substance: AZITHROMYCIN ANHYDROUS
  15. SYMBICORT [Concomitant]
     Active Substance: BUDESONIDE\FORMOTEROL FUMARATE DIHYDRATE
  16. SULFACETAMIDE SODIUM. [Concomitant]
     Active Substance: SULFACETAMIDE SODIUM
     Dosage: ACNE
     Route: 065
  17. PREDNISONE. [Concomitant]
     Active Substance: PREDNISONE
  18. DELTASONE [Concomitant]
     Active Substance: PREDNISONE
  19. CARDIZEM CD [Concomitant]
     Active Substance: DILTIAZEM HYDROCHLORIDE
  20. ESBRIET [Suspect]
     Active Substance: PIRFENIDONE
     Indication: COR PULMONALE ACUTE
  21. LEVOTHYROXINE SODIUM. [Concomitant]
     Active Substance: LEVOTHYROXINE SODIUM
  22. FLUOXETINE HCL [Concomitant]
     Active Substance: FLUOXETINE HYDROCHLORIDE
  23. BENTYL [Concomitant]
     Active Substance: DICYCLOMINE HYDROCHLORIDE
  24. ESBRIET [Suspect]
     Active Substance: PIRFENIDONE
     Indication: PULMONARY EMBOLISM
     Dosage: 2ND FILL
     Route: 048
     Dates: start: 20160815
  25. ACETAMINOPHEN AND CODEINE [Concomitant]
     Active Substance: ACETAMINOPHEN\CODEINE PHOSPHATE
  26. ALBUTEROL SULFATE. [Concomitant]
     Active Substance: ALBUTEROL SULFATE
  27. MEVACOR [Concomitant]
     Active Substance: LOVASTATIN
  28. TRIAMCINOLONE ACETONIDE. [Concomitant]
     Active Substance: TRIAMCINOLONE ACETONIDE
  29. SYNTHROID [Concomitant]
     Active Substance: LEVOTHYROXINE SODIUM
  30. SPIRIVA [Concomitant]
     Active Substance: TIOTROPIUM BROMIDE MONOHYDRATE
  31. RESTORIL [Concomitant]
     Active Substance: TEMAZEPAM
  32. PROZAC [Concomitant]
     Active Substance: FLUOXETINE HYDROCHLORIDE
  33. K-TAB [Concomitant]
     Active Substance: POTASSIUM CHLORIDE
  34. DICYCLOMINE HCL [Concomitant]
     Active Substance: DICYCLOMINE HYDROCHLORIDE

REACTIONS (10)
  - Nausea [Unknown]
  - Gastric disorder [Not Recovered/Not Resolved]
  - Drug intolerance [Unknown]
  - Incorrect dose administered [Unknown]
  - Urinary retention [Unknown]
  - Decreased appetite [Unknown]
  - Abdominal discomfort [Unknown]
  - Gastritis [Unknown]
  - Dyspepsia [Not Recovered/Not Resolved]
  - Medication error [Unknown]

NARRATIVE: CASE EVENT DATE: 20161125
